FAERS Safety Report 16799200 (Version 4)
Quarter: 2020Q2

REPORT INFORMATION
  Report Type: Spontaneous
  Country: US (occurrence: US)
  Receive Date: 20190912
  Receipt Date: 20200629
  Transmission Date: 20200713
  Serious: No
  Sender: FDA-Public Use
  Company Number: US-BIOGEN-2015BI050798

PATIENT
  Sex: Female

DRUGS (6)
  1. TYSABRI [Suspect]
     Active Substance: NATALIZUMAB
     Route: 050
     Dates: start: 20091216
  2. IBU [Concomitant]
     Active Substance: IBUPROFEN
     Route: 065
     Dates: start: 20181015
  3. TYSABRI [Suspect]
     Active Substance: NATALIZUMAB
     Indication: MULTIPLE SCLEROSIS
     Route: 050
     Dates: start: 20091216
  4. TYSABRI [Suspect]
     Active Substance: NATALIZUMAB
     Route: 050
  5. TRAMADOL. [Concomitant]
     Active Substance: TRAMADOL
     Route: 065
     Dates: start: 20161201
  6. TYSABRI [Suspect]
     Active Substance: NATALIZUMAB
     Route: 042
     Dates: start: 20171013

REACTIONS (6)
  - Central nervous system lesion [Unknown]
  - Salivary gland disorder [Unknown]
  - Drug specific antibody present [Unknown]
  - Prescribed underdose [Unknown]
  - Product dose omission [Unknown]
  - Multiple sclerosis [Unknown]
